FAERS Safety Report 4447047-7 (Version None)
Quarter: 2004Q3

REPORT INFORMATION
  Report Type: 
  Country: None (occurrence: None)
  Receive Date: 20040812
  Receipt Date: 20040427
  Transmission Date: 20050211
  Serious: No
  Sender: FDA-Public Use
  Company Number: US_0403101258

PATIENT
  Age: 52 Year
  Sex: Male
  Weight: 89 kg

DRUGS (5)
  1. CIALIS [Suspect]
     Indication: ERECTILE DYSFUNCTION
     Dosage: 10 MG
     Dates: start: 20040226
  2. METOPROLOL SUCCINATE [Concomitant]
  3. CLONIDINE HCL [Concomitant]
  4. TALWIN [Concomitant]
  5. ROBAXIN (METHOCRBAMOL) [Concomitant]

REACTIONS (2)
  - HYPOTENSION [None]
  - TESTICULAR PAIN [None]
